FAERS Safety Report 14896538 (Version 3)
Quarter: 2018Q2

REPORT INFORMATION
  Report Type: Spontaneous
  Country: CA (occurrence: CA)
  Receive Date: 20180515
  Receipt Date: 20180607
  Transmission Date: 20180711
  Serious: Yes (Hospitalization, Other)
  Sender: FDA-Public Use
  Company Number: CA-PFIZER INC-2018196419

PATIENT
  Age: 96 Year
  Sex: Female

DRUGS (13)
  1. SALBUTAMOL SULFATE [Suspect]
     Active Substance: ALBUTEROL SULFATE
     Dosage: UNK
     Route: 065
  2. SYNTHROID [Suspect]
     Active Substance: LEVOTHYROXINE SODIUM
     Dosage: UNK
     Route: 065
  3. TECTA [Suspect]
     Active Substance: PANTOPRAZOLE MAGNESIUM
     Dosage: UNK
     Route: 065
  4. PILOCARPINE HCL [Suspect]
     Active Substance: PILOCARPINE HYDROCHLORIDE
     Dosage: UNK
     Route: 065
  5. OMNARIS [Suspect]
     Active Substance: CICLESONIDE
     Dosage: UNK (METERED DOSE)
     Route: 045
  6. ATOCK [Suspect]
     Active Substance: FORMOTEROL FUMARATE
     Dosage: 1 DF, 2X/DAY
     Route: 065
  7. BETAXOLOL HYDROCHLORIDE. [Suspect]
     Active Substance: BETAXOLOL HYDROCHLORIDE
     Dosage: UNK
     Route: 065
  8. MOGADON [Suspect]
     Active Substance: NITRAZEPAM
     Dosage: UNK
     Route: 065
  9. NITROJECT [Suspect]
     Active Substance: NITROGLYCERIN
     Dosage: UNK
     Route: 065
  10. QVAR [Suspect]
     Active Substance: BECLOMETHASONE DIPROPIONATE
     Dosage: 2 DF, 2X/DAY
     Route: 065
  11. METFORMIN HCL [Suspect]
     Active Substance: METFORMIN HYDROCHLORIDE
     Dosage: UNK
     Route: 065
  12. NITROGLYCERIN. [Suspect]
     Active Substance: NITROGLYCERIN
     Dosage: UNK
     Route: 065
  13. XALATAN [Suspect]
     Active Substance: LATANOPROST
     Dosage: UNK
     Route: 065

REACTIONS (7)
  - Asthma [Unknown]
  - Limb injury [Unknown]
  - Haemorrhage [Unknown]
  - Transient ischaemic attack [Unknown]
  - Wound [Unknown]
  - Myocardial infarction [Unknown]
  - Cardiac failure congestive [Unknown]
